FAERS Safety Report 25870170 (Version 1)
Quarter: 2025Q4

REPORT INFORMATION
  Report Type: Report from Study
  Country: US (occurrence: US)
  Receive Date: 20251001
  Receipt Date: 20251001
  Transmission Date: 20260118
  Serious: Yes (Other)
  Sender: ABBVIE
  Company Number: US-ABBVIE-6481934

PATIENT
  Age: 68 Year
  Sex: Male

DRUGS (1)
  1. SKYRIZI [Suspect]
     Active Substance: RISANKIZUMAB-RZAA
     Indication: Psoriasis
     Route: 058
     Dates: start: 20240115, end: 20250701

REACTIONS (5)
  - Neoplasm [Unknown]
  - Bone pain [Unknown]
  - Therapeutic response shortened [Unknown]
  - Psoriasis [Unknown]
  - Bone disorder [Unknown]

NARRATIVE: CASE EVENT DATE: 20240301
